FAERS Safety Report 12600483 (Version 1)
Quarter: 2016Q3

REPORT INFORMATION
  Report Type: Spontaneous
  Country: US (occurrence: US)
  Receive Date: 20160727
  Receipt Date: 20160727
  Transmission Date: 20161109
  Serious: Yes (Other)
  Sender: FDA-Public Use
  Company Number: US-PFIZER INC-2016355641

PATIENT
  Age: 47 Year
  Sex: Female

DRUGS (20)
  1. PHENYTOIN SODIUM. [Suspect]
     Active Substance: PHENYTOIN SODIUM
     Indication: SEIZURE
     Dosage: 400 MG, DAILY (AT BED TIME)
     Route: 048
  2. WARFARIN [Interacting]
     Active Substance: WARFARIN
     Dosage: 12.5 MG, DAILY
     Route: 048
  3. ESOMEPRAZOLE [Concomitant]
     Active Substance: ESOMEPRAZOLE
  4. DULOXETINE. [Concomitant]
     Active Substance: DULOXETINE
  5. WARFARIN [Interacting]
     Active Substance: WARFARIN
     Dosage: 10 MG, DAILY
     Route: 048
  6. WARFARIN [Interacting]
     Active Substance: WARFARIN
     Indication: DEEP VEIN THROMBOSIS
     Dosage: 10 MG, DAILY
     Route: 048
  7. FLUOXETINE [Concomitant]
     Active Substance: FLUOXETINE HYDROCHLORIDE
  8. ENOXAPARIN [Concomitant]
     Active Substance: ENOXAPARIN
     Indication: DEEP VEIN THROMBOSIS
     Dosage: 60 MG, 2X/DAY (EVERY 12 HOURS)
     Route: 058
  9. WARFARIN [Interacting]
     Active Substance: WARFARIN
     Dosage: 15 MG, DAILY
     Route: 048
  10. CIPROFLOXACIN. [Concomitant]
     Active Substance: CIPROFLOXACIN
  11. SERTRALINE [Concomitant]
     Active Substance: SERTRALINE HYDROCHLORIDE
  12. TRAZODONE [Concomitant]
     Active Substance: TRAZODONE HYDROCHLORIDE
  13. WARFARIN [Interacting]
     Active Substance: WARFARIN
     Dosage: 5 MG, DAILY
     Route: 048
  14. WARFARIN [Interacting]
     Active Substance: WARFARIN
     Dosage: 10 MG, DAILY
     Route: 048
  15. ATENOLOL. [Concomitant]
     Active Substance: ATENOLOL
  16. MIRTAZAPINE. [Concomitant]
     Active Substance: MIRTAZAPINE
  17. WARFARIN [Interacting]
     Active Substance: WARFARIN
     Dosage: 7.5 MG, DAILY
     Route: 048
  18. METRONIDAZOLE. [Concomitant]
     Active Substance: METRONIDAZOLE
  19. TRAMADOL. [Concomitant]
     Active Substance: TRAMADOL
  20. ACETAMINOPHEN. [Concomitant]
     Active Substance: ACETAMINOPHEN

REACTIONS (7)
  - International normalised ratio fluctuation [Recovering/Resolving]
  - Drug interaction [Unknown]
  - Aspartate aminotransferase increased [Unknown]
  - Alanine aminotransferase increased [Unknown]
  - Gamma-glutamyltransferase abnormal [Unknown]
  - Blood alkaline phosphatase increased [Unknown]
  - Purple glove syndrome [Recovering/Resolving]
